FAERS Safety Report 20780338 (Version 2)
Quarter: 2022Q2

REPORT INFORMATION
  Report Type: Other
  Country: US (occurrence: None)
  Receive Date: 20220504
  Receipt Date: 20220510
  Transmission Date: 20220721
  Serious: Yes (Death)
  Sender: FDA-Public Use
  Company Number: US-ROCHE-3089866

PATIENT
  Age: 91 Year
  Sex: Female

DRUGS (9)
  1. ESBRIET [Suspect]
     Active Substance: PIRFENIDONE
     Indication: Interstitial lung disease
     Dosage: TAKE 3 TABLET(S) BY MOUTH 3 TIMES A DAY
     Route: 048
  2. TYLENOL [Concomitant]
     Active Substance: ACETAMINOPHEN
  3. RANITIDINE [Concomitant]
     Active Substance: RANITIDINE
  4. NITROSTAT [Concomitant]
     Active Substance: NITROGLYCERIN
  5. LOSARTAN [Concomitant]
     Active Substance: LOSARTAN
  6. DILTIAZEM [Concomitant]
     Active Substance: DILTIAZEM
  7. PRAVASTATIN [Concomitant]
     Active Substance: PRAVASTATIN
  8. ASPIRIN [Concomitant]
     Active Substance: ASPIRIN
  9. ARICEPT [Concomitant]
     Active Substance: DONEPEZIL HYDROCHLORIDE

REACTIONS (1)
  - Death [Fatal]

NARRATIVE: CASE EVENT DATE: 20220502
